FAERS Safety Report 16042536 (Version 1)
Quarter: 2019Q2

REPORT INFORMATION
  Report Type: Spontaneous
  Country: US (occurrence: US)
  Receive Date: 20190306
  Receipt Date: 20190306
  Transmission Date: 20190711
  Serious: Yes (Death)
  Sender: FDA-Public Use
  Company Number: None

PATIENT
  Age: 56 Year
  Sex: Male
  Weight: 76.5 kg

DRUGS (4)
  1. BUPROPION. [Concomitant]
     Active Substance: BUPROPION
  2. ACTIVASE [Suspect]
     Active Substance: ALTEPLASE
     Indication: ISCHAEMIC STROKE
     Dates: start: 20181122
  3. ASPIRIN. [Concomitant]
     Active Substance: ASPIRIN
  4. SERTRALINE [Concomitant]
     Active Substance: SERTRALINE HYDROCHLORIDE

REACTIONS (4)
  - Infusion related reaction [None]
  - Condition aggravated [None]
  - Vomiting [None]
  - Brain stem haemorrhage [None]

NARRATIVE: CASE EVENT DATE: 20181122
